FAERS Safety Report 5062887-1 (Version None)
Quarter: 2006Q3

REPORT INFORMATION
  Report Type: 
  Country: None (occurrence: None)
  Receive Date: 20060724
  Receipt Date: 20060711
  Transmission Date: 20061208
  Serious: Yes (Death, Hospitalization)
  Sender: FDA-Public Use
  Company Number: 2006073956

PATIENT
  Age: 53 Year
  Sex: Male
  Weight: 57.2 kg

DRUGS (7)
  1. SUTENT [Suspect]
     Indication: METASTATIC RENAL CELL CARCINOMA
     Dosage: 50 MG (50 MG, 1 IN 1 D), ORAL
     Route: 048
     Dates: start: 20060119
  2. MST (MORPHINE SULFATE) [Concomitant]
  3. MORPHINE SULFATE [Concomitant]
  4. GABAPENTIN [Concomitant]
  5. DEXAMETHASONE TAB [Concomitant]
  6. LORMETAZEPAM [Concomitant]
  7. PYRIDOSTIGMINE BROMIDE [Concomitant]

REACTIONS (2)
  - PNEUMONIA [None]
  - RESPIRATORY FAILURE [None]
